FAERS Safety Report 17560720 (Version 1)
Quarter: 2020Q1

REPORT INFORMATION
  Report Type: Spontaneous
  Country: US (occurrence: US)
  Receive Date: 20200311
  Receipt Date: 20200311
  Transmission Date: 20200409
  Serious: Yes (Hospitalization, Other)
  Sender: FDA-Public Use
  Company Number: None

PATIENT
  Age: 60 Year
  Sex: Female
  Weight: 82.1 kg

DRUGS (8)
  1. KEPPRA [Concomitant]
     Active Substance: LEVETIRACETAM
  2. IRON [Concomitant]
     Active Substance: IRON
  3. EVENITY [Suspect]
     Active Substance: ROMOSOZUMAB-AQQG
     Indication: OSTEOPOROSIS PROPHYLAXIS
     Dosage: ?          QUANTITY:TWO (2) INJECTIONS;OTHER FREQUENCY:1XACCEPTED 12MONTH;OTHER ROUTE:INJ 01-21-2020?
     Dates: start: 20200121, end: 20200121
  4. ZINC. [Concomitant]
     Active Substance: ZINC
  5. VITAMIN B12 [Concomitant]
     Active Substance: CYANOCOBALAMIN
  6. FOLIC ACID. [Concomitant]
     Active Substance: FOLIC ACID
  7. MAGNESIUM [Concomitant]
     Active Substance: MAGNESIUM
  8. V-E [Concomitant]

REACTIONS (6)
  - Alcohol use [None]
  - Muscle spasms [None]
  - Headache [None]
  - Hypocalcaemia [None]
  - Seizure [None]
  - Disorientation [None]

NARRATIVE: CASE EVENT DATE: 20200121
